FAERS Safety Report 25572469 (Version 1)
Quarter: 2025Q3

REPORT INFORMATION
  Report Type: Spontaneous
  Country: US (occurrence: None)
  Receive Date: 20250717
  Receipt Date: 20250717
  Transmission Date: 20251020
  Serious: Yes (Other)
  Sender: FDA-CTU
  Company Number: None

PATIENT
  Sex: Male

DRUGS (11)
  1. LENALIDOMIDE [Suspect]
     Active Substance: LENALIDOMIDE
     Indication: Plasma cell myeloma
     Dosage: FREQUENCY : DAILY;?
     Route: 048
     Dates: start: 20250715
  2. ASPIRIN [Concomitant]
     Active Substance: ASPIRIN
  3. MAGNESIUM TAB 250MG [Concomitant]
  4. MULTIVITAMIN TAB ADULTS [Concomitant]
  5. SINGULAIR [Concomitant]
     Active Substance: MONTELUKAST SODIUM
  6. SYNTHROID TAB 75MCG [Concomitant]
  7. VALACYCLOVIR TAB 500MG [Concomitant]
  8. VITAMIN C TAB 1000MG [Concomitant]
  9. VITAMIN D3 TAB 25MCG [Concomitant]
  10. WELCHOL TAB 625MG [Concomitant]
  11. ZINC TAB 50MG [Concomitant]

REACTIONS (4)
  - Tendon rupture [None]
  - Post procedural complication [None]
  - Muscular weakness [None]
  - Myalgia [None]
